FAERS Safety Report 17899317 (Version 1)
Quarter: 2020Q2

REPORT INFORMATION
  Report Type: Spontaneous
  Country: US (occurrence: US)
  Receive Date: 20200615
  Receipt Date: 20200615
  Transmission Date: 20200714
  Serious: Yes (Life-Threatening)
  Sender: FDA-Public Use
  Company Number: None

PATIENT
  Age: 41 Year
  Sex: Male
  Weight: 130.05 kg

DRUGS (2)
  1. COVID-19 CONVALESCENT PLASMA. [Concomitant]
     Active Substance: COVID-19 CONVALESCENT PLASMA
     Dates: start: 20200612, end: 20200612
  2. REMDESIVIR. [Suspect]
     Active Substance: REMDESIVIR

REACTIONS (3)
  - Pneumonia [None]
  - Acute respiratory distress syndrome [None]
  - Respiratory failure [None]

NARRATIVE: CASE EVENT DATE: 20200614
